FAERS Safety Report 8291828 (Version 2)
Quarter: 2015Q2

REPORT INFORMATION
  Report Type: Spontaneous
  Country: US (occurrence: US)
  Receive Date: 20111214
  Receipt Date: 20150422
  Transmission Date: 20150821
  Serious: Yes (Other)
  Sender: FDA-Public Use
  Company Number: US-ROCHE-794250

PATIENT
  Sex: Female
  Weight: 44.49 kg

DRUGS (1)
  1. ACCUTANE [Suspect]
     Active Substance: ISOTRETINOIN
     Indication: ACNE
     Route: 048
     Dates: start: 2000, end: 2001

REACTIONS (8)
  - Intestinal obstruction [Unknown]
  - Colitis ulcerative [Unknown]
  - Inflammatory bowel disease [Unknown]
  - Anal fissure [Unknown]
  - Irritable bowel syndrome [Unknown]
  - Depression [Unknown]
  - Haemorrhoids [Unknown]
  - Seizure [Unknown]

NARRATIVE: CASE EVENT DATE: 2002
